FAERS Safety Report 5128572-2 (Version None)
Quarter: 2006Q4

REPORT INFORMATION
  Report Type: 
  Country: None (occurrence: None)
  Receive Date: 20061017
  Receipt Date: 20060925
  Transmission Date: 20070319
  Serious: Yes (Other)
  Sender: FDA-Public Use
  Company Number: JP-GLAXOSMITHKLINE-B0440201A

PATIENT
  Age: 77 Year
  Sex: Male
  Weight: 50 kg

DRUGS (1)
  1. PAXIL [Suspect]
     Indication: DEPRESSION
     Route: 048
     Dates: start: 20051128, end: 20060925

REACTIONS (4)
  - DYSKINESIA [None]
  - FEELING ABNORMAL [None]
  - SEROTONIN SYNDROME [None]
  - SLEEP TALKING [None]
